FAERS Safety Report 23990605 (Version 2)
Quarter: 2024Q3

REPORT INFORMATION
  Report Type: Spontaneous
  Country: US (occurrence: US)
  Receive Date: 20240619
  Receipt Date: 20240805
  Transmission Date: 20241016
  Serious: Yes (Other)
  Sender: BRISTOL MYERS SQUIBB
  Company Number: US-BRISTOL-MYERS SQUIBB COMPANY-2024-097451

PATIENT
  Age: 90 Year
  Sex: Male

DRUGS (2)
  1. POMALYST [Suspect]
     Active Substance: POMALIDOMIDE
     Indication: Plasma cell myeloma
     Dosage: FREQ: EVERY DAY FOR 14 DAYS ON FOLLOWED BY 14 DAYS OFF
     Route: 048
  2. POMALYST [Suspect]
     Active Substance: POMALIDOMIDE
     Dosage: FREQ: EVERY DAY FOR 14 DAYS ON FOLLOWED BY 14 DAYS OFF
     Route: 048

REACTIONS (3)
  - Off label use [Unknown]
  - Product distribution issue [Unknown]
  - Chronic kidney disease [Unknown]
